FAERS Safety Report 19245161 (Version 1)
Quarter: 2021Q2

REPORT INFORMATION
  Report Type: Spontaneous
  Country: CN (occurrence: CN)
  Receive Date: 20210512
  Receipt Date: 20210512
  Transmission Date: 20210717
  Serious: Yes (Other)
  Sender: FDA-Public Use
  Company Number: CN-ROCHE-2825740

PATIENT
  Age: 48 Year
  Sex: Female

DRUGS (9)
  1. MABTHERA [Suspect]
     Active Substance: RITUXIMAB
     Indication: FOLLICULAR LYMPHOMA
     Dosage: 8?JAN?2021, 28?JAN?2021, 18?FEB?2021, 11?MAR?2021
     Route: 065
  2. DEXAMETHASONE. [Concomitant]
     Active Substance: DEXAMETHASONE
     Indication: FOLLICULAR LYMPHOMA
     Dosage: 8?JAN?2021, 28?JAN?2021, 18?FEB?2021, 11?MAR?2021
  3. EPIRUBICIN [Concomitant]
     Active Substance: EPIRUBICIN
     Indication: FOLLICULAR LYMPHOMA
     Dates: start: 20210429
  4. VINDESINE [Concomitant]
     Active Substance: VINDESINE
     Indication: FOLLICULAR LYMPHOMA
     Dosage: 8?JAN?2021, 28?JAN?2021, 18?FEB?2021, 11?MAR?2021
  5. CYCLOPHOSPHAMIDE. [Concomitant]
     Active Substance: CYCLOPHOSPHAMIDE
     Dates: start: 20210429
  6. MABTHERA [Suspect]
     Active Substance: RITUXIMAB
     Route: 065
     Dates: start: 20210429
  7. CYCLOPHOSPHAMIDE. [Concomitant]
     Active Substance: CYCLOPHOSPHAMIDE
     Indication: FOLLICULAR LYMPHOMA
     Dosage: 8?JAN?2021, 28?JAN?2021, 18?FEB?2021, 11?MAR?2021
  8. VINDESINE [Concomitant]
     Active Substance: VINDESINE
     Dates: start: 20210429
  9. DEXAMETHASONE. [Concomitant]
     Active Substance: DEXAMETHASONE
     Dates: start: 20210429

REACTIONS (3)
  - Interstitial lung disease [Recovering/Resolving]
  - Pneumonia [Recovering/Resolving]
  - Myelosuppression [Recovering/Resolving]
